FAERS Safety Report 23687719 (Version 1)
Quarter: 2024Q1

REPORT INFORMATION
  Report Type: Spontaneous
  Country: CN (occurrence: CN)
  Receive Date: 20240329
  Receipt Date: 20240329
  Transmission Date: 20240410
  Serious: Yes (Hospitalization, Disabling)
  Sender: FDA-Public Use
  Company Number: CN-PFIZER INC-PV202400041523

PATIENT
  Age: 74 Year
  Sex: Male
  Weight: 65 kg

DRUGS (1)
  1. VORICONAZOLE [Suspect]
     Active Substance: VORICONAZOLE
     Indication: Pneumonia
     Dosage: 200 MG, 2X/DAY
     Route: 048
     Dates: start: 20231109, end: 20240206

REACTIONS (2)
  - Dermatitis [Recovering/Resolving]
  - Pigmentation disorder [Recovering/Resolving]

NARRATIVE: CASE EVENT DATE: 20240101
